FAERS Safety Report 9695080 (Version 1)
Quarter: 2013Q4

REPORT INFORMATION
  Report Type: Spontaneous
  Country: FR (occurrence: FR)
  Receive Date: 20131119
  Receipt Date: 20131119
  Transmission Date: 20140711
  Serious: Yes (Hospitalization)
  Sender: FDA-Public Use
  Company Number: PHHY2013FR130109

PATIENT
  Age: 87 Year
  Sex: Female

DRUGS (9)
  1. EXELON [Suspect]
     Indication: COGNITIVE DISORDER
     Dosage: 3 MG, BID
     Dates: start: 20130416
  2. DICLOFENAC [Suspect]
     Indication: OSTEOARTHRITIS
     Dosage: 1 TO 3 APPLICATIONS DAILY
     Route: 003
     Dates: start: 20130416, end: 20130910
  3. PRAVASTATIN [Suspect]
     Indication: PROPHYLAXIS
     Dosage: 20 MG, QD
     Route: 048
     Dates: start: 20130416
  4. XARELTO [Suspect]
     Indication: ARRHYTHMIA
     Dosage: 15 MG, QD
     Route: 048
     Dates: start: 20130720, end: 20130910
  5. PIASCLEDINE [Suspect]
     Indication: OSTEOARTHRITIS
     Dosage: 300 MG, QD
     Route: 048
     Dates: start: 20130416, end: 20130910
  6. DOLIPRANE [Suspect]
     Indication: PAIN
     Dosage: 1000 MG, BID
     Route: 048
     Dates: start: 20130416
  7. HYPERIUM [Suspect]
     Indication: HYPERTENSION
     Dosage: 1 MG, QD
     Route: 048
     Dates: start: 20130416
  8. CORDARONE [Suspect]
     Dosage: 200 MG, QW5
     Dates: start: 20130416
  9. COVERAM [Concomitant]
     Dosage: 5 MG/10 MG
     Route: 048
     Dates: start: 20130416, end: 20130510

REACTIONS (3)
  - Hypersensitivity vasculitis [Recovering/Resolving]
  - Purpura [Recovered/Resolved]
  - Rash [Recovering/Resolving]
